FAERS Safety Report 6500361-3 (Version None)
Quarter: 2009Q4

REPORT INFORMATION
  Report Type: 
  Country: None (occurrence: None)
  Receive Date: 20091216
  Receipt Date: 20091209
  Transmission Date: 20100525
  Serious: No
  Sender: FDA-Public Use
  Company Number: DE-ROCHE-674573

PATIENT

DRUGS (1)
  1. TAMIFLU [Suspect]
     Indication: DRUG USE FOR UNKNOWN INDICATION
     Dosage: DOUBLED DOSE
     Route: 048
     Dates: start: 20091209

REACTIONS (2)
  - NO ADVERSE EVENT [None]
  - OVERDOSE [None]
